FAERS Safety Report 24680431 (Version 3)
Quarter: 2024Q4

REPORT INFORMATION
  Report Type: Spontaneous
  Country: US (occurrence: US)
  Receive Date: 20241129
  Receipt Date: 20241220
  Transmission Date: 20250114
  Serious: Yes (Other)
  Sender: PFIZER
  Company Number: US-PFIZER INC-PV202400154397

PATIENT
  Age: 60 Year
  Sex: Female
  Weight: 52.163 kg

DRUGS (2)
  1. PREMARIN [Suspect]
     Active Substance: ESTROGENS, CONJUGATED
     Dosage: 1 G, 2X/WEEK (INSERT 0.5 APPLICATOR(S) FULL TWICE A WEEK FOR 30 DAYS)
     Route: 067
  2. PREMARIN [Suspect]
     Active Substance: ESTROGENS, CONJUGATED
     Dosage: 1 G, DAILY (INSERT 0.5 APPLICATOR(S)FUL EVERYDAY)
     Route: 067

REACTIONS (8)
  - Stress fracture [Unknown]
  - Osteoarthritis [Unknown]
  - Arthralgia [Unknown]
  - Rotator cuff syndrome [Unknown]
  - Pain in extremity [Unknown]
  - Tendon injury [Unknown]
  - Greater trochanteric pain syndrome [Unknown]
  - Off label use [Unknown]

NARRATIVE: CASE EVENT DATE: 20181022
